FAERS Safety Report 4845864-2 (Version None)
Quarter: 2005Q4

REPORT INFORMATION
  Report Type: 
  Country: None (occurrence: None)
  Receive Date: 20051130
  Receipt Date: 20051123
  Transmission Date: 20060501
  Serious: Yes (Hospitalization)
  Sender: FDA-Public Use
  Company Number: THQ2005A00988

PATIENT
  Age: 64 Year
  Sex: Male

DRUGS (12)
  1. PIOGLITAZONE HCL [Suspect]
     Indication: DIABETES MELLITUS
     Dosage: 30 MG (30 MG, 1 IN 1 D) PER ORAL
     Route: 048
     Dates: start: 20040819, end: 20041118
  2. PIOGLITAZONE HCL [Suspect]
     Indication: DIABETES MELLITUS
     Dosage: 30 MG (30 MG, 1 IN 1 D) PER ORAL
     Route: 048
     Dates: start: 20040819, end: 20041118
  3. METFORMIN HYDROCHLORIDE [Suspect]
     Indication: DIABETES MELLITUS NON-INSULIN-DEPENDENT
     Dosage: 1500 MG (1500 MG, 1 IN 1 D) PER ORAL
     Route: 048
     Dates: start: 20020101, end: 20041118
  4. ASPIRIN [Concomitant]
  5. ENALAPRIL [Concomitant]
  6. ISOSORBIDE MONONITRATE [Concomitant]
  7. METOPROLOL [Concomitant]
  8. MODURETIC (MODURETIC    MSD) [Concomitant]
  9. DORFLEX [Concomitant]
  10. PARACETAMOL [Concomitant]
  11. FLUOXETINE HYDROCHLORIDE [Concomitant]
  12. BROMAZEPAM [Concomitant]

REACTIONS (14)
  - ACUTE CORONARY SYNDROME [None]
  - AORTIC CALCIFICATION [None]
  - AORTIC DILATATION [None]
  - AORTIC DISSECTION [None]
  - AORTIC VALVE DISEASE [None]
  - ATRIOVENTRICULAR BLOCK FIRST DEGREE [None]
  - BUNDLE BRANCH BLOCK LEFT [None]
  - CARDIAC FAILURE CONGESTIVE [None]
  - ISCHAEMIA [None]
  - MITRAL VALVE INCOMPETENCE [None]
  - MYOCARDIAL INFARCTION [None]
  - QRS AXIS ABNORMAL [None]
  - RIB FRACTURE [None]
  - VENTRICULAR DYSFUNCTION [None]
